FAERS Safety Report 19886384 (Version 1)
Quarter: 2021Q3

REPORT INFORMATION
  Report Type: Spontaneous
  Country: FR (occurrence: FR)
  Receive Date: 20210927
  Receipt Date: 20210927
  Transmission Date: 20211014
  Serious: Yes (Hospitalization)
  Sender: FDA-Public Use
  Company Number: FR-PFIZER INC-202101221995

PATIENT
  Age: 54 Year
  Sex: Female

DRUGS (3)
  1. CLINDAMYCIN PHOSPHATE. [Suspect]
     Active Substance: CLINDAMYCIN PHOSPHATE
     Indication: ARTHRECTOMY
     Dosage: UNK
     Route: 042
     Dates: start: 20210608, end: 20210614
  2. PIPERACILLIN/TAZOBACTAM [Suspect]
     Active Substance: PIPERACILLIN SODIUM\TAZOBACTAM SODIUM
     Indication: ARTHRECTOMY
     Dosage: UNK
     Route: 042
     Dates: start: 20210603, end: 20210608
  3. OFLOXACINE [Suspect]
     Active Substance: OFLOXACIN
     Indication: ARTHRECTOMY
     Dosage: UNK
     Route: 042
     Dates: start: 20210608, end: 20210611

REACTIONS (3)
  - Toxic skin eruption [Recovered/Resolved]
  - Pyrexia [Recovered/Resolved]
  - Rash [Recovered/Resolved]

NARRATIVE: CASE EVENT DATE: 20210609
